FAERS Safety Report 5364434-3 (Version None)
Quarter: 2007Q2

REPORT INFORMATION
  Report Type: 
  Country: None (occurrence: None)
  Receive Date: 20070530
  Receipt Date: 20070107
  Transmission Date: 20071010
  Serious: No
  Sender: FDA-Public Use
  Company Number: 2007PV027961

PATIENT
  Age: 38 Year
  Sex: Female
  Weight: 131.5431 kg

DRUGS (4)
  1. BYETTA [Suspect]
     Indication: DIABETES MELLITUS NON-INSULIN-DEPENDENT
     Dosage: 5 MCG;BID;SC
     Route: 058
     Dates: start: 20061101
  2. LANTUS [Concomitant]
  3. AVANDARYL [Concomitant]
  4. UNKNOWN BLOOD PRESSURE MEDICATION [Concomitant]

REACTIONS (3)
  - BLOOD GLUCOSE DECREASED [None]
  - BLOOD PRESSURE DECREASED [None]
  - WEIGHT DECREASED [None]
